FAERS Safety Report 5035402-6 (Version None)
Quarter: 2006Q2

REPORT INFORMATION
  Report Type: 
  Country: None (occurrence: None)
  Receive Date: 20060622
  Receipt Date: 20060607
  Transmission Date: 20061013
  Serious: Yes (Other)
  Sender: FDA-Public Use
  Company Number: 2006EN000132

PATIENT
  Age: 77 Year
  Sex: Female

DRUGS (4)
  1. ABELCET [Suspect]
     Indication: FUNGAL INFECTION
     Dosage: QD; IV
     Route: 042
     Dates: start: 20060512, end: 20060513
  2. VANCOMYCIN [Concomitant]
  3. IMIPENEM [Concomitant]
  4. PARACETAMOL [Concomitant]

REACTIONS (4)
  - DYSPNOEA [None]
  - ERYTHEMA [None]
  - GENERALISED ERYTHEMA [None]
  - LARYNGEAL OEDEMA [None]
